FAERS Safety Report 8213937-2 (Version None)
Quarter: 2012Q1

REPORT INFORMATION
  Report Type: 
  Country: None (occurrence: None)
  Receive Date: 20120316
  Receipt Date: 20120306
  Transmission Date: 20120608
  Serious: Yes (Hospitalization, Other)
  Sender: FDA-Public Use
  Company Number: US-ELI_LILLY_AND_COMPANY-US201203001522

PATIENT
  Sex: Female
  Weight: 96.145 kg

DRUGS (4)
  1. BYETTA [Suspect]
     Dosage: 10 UG, BID
     Route: 058
     Dates: start: 20080901
  2. BYETTA [Suspect]
     Indication: TYPE 2 DIABETES MELLITUS
     Dosage: 5 UG, BID
     Route: 058
     Dates: start: 20080801, end: 20080901
  3. METFORMIN HCL [Concomitant]
     Indication: TYPE 2 DIABETES MELLITUS
     Dosage: 1000 MG, BID
     Route: 048
  4. DIOVAN [Concomitant]
     Dosage: 160 MG, QD
     Route: 048

REACTIONS (8)
  - DYSPNOEA [None]
  - WEIGHT DECREASED [None]
  - INTENTIONAL DRUG MISUSE [None]
  - FEELING HOT [None]
  - BLOOD GLUCOSE DECREASED [None]
  - SINUSITIS [None]
  - DRUG INTERACTION [None]
  - ASTHENIA [None]
